FAERS Safety Report 13243219 (Version 1)
Quarter: 2017Q1

REPORT INFORMATION
  Report Type: Spontaneous
  Country: US (occurrence: US)
  Receive Date: 20170216
  Receipt Date: 20170216
  Transmission Date: 20170428
  Serious: Yes (Other)
  Sender: FDA-Public Use
  Company Number: None

PATIENT
  Age: 54 Year
  Sex: Female
  Weight: 86.64 kg

DRUGS (4)
  1. LEXISCAN [Suspect]
     Active Substance: REGADENOSON
  2. VITAMIN D [Concomitant]
     Active Substance: CHOLECALCIFEROL
  3. WARFARIN SODIUM. [Concomitant]
     Active Substance: WARFARIN SODIUM
  4. FOLIC ACID. [Concomitant]
     Active Substance: FOLIC ACID

REACTIONS (11)
  - Hypoaesthesia oral [None]
  - Hypoaesthesia [None]
  - Musculoskeletal stiffness [None]
  - Headache [None]
  - Muscle tightness [None]
  - Paraesthesia [None]
  - Tremor [None]
  - Chest pain [None]
  - Eructation [None]
  - Blood pressure decreased [None]
  - Contrast media reaction [None]

NARRATIVE: CASE EVENT DATE: 20170216
